FAERS Safety Report 4333372-7 (Version None)
Quarter: 2004Q1

REPORT INFORMATION
  Report Type: 
  Country: None (occurrence: None)
  Receive Date: 20040330
  Receipt Date: 20040319
  Transmission Date: 20041129
  Serious: Yes (Life-Threatening)
  Sender: FDA-Public Use
  Company Number: 200416429BWH

PATIENT
  Sex: Male

DRUGS (7)
  1. LEVITRA [Suspect]
     Indication: ERECTILE DYSFUNCTION
     Dosage: ORAL
     Route: 048
  2. DILTIAZEM [Concomitant]
  3. ULTRAM [Concomitant]
  4. ATENOLOL [Concomitant]
  5. LASIX [Concomitant]
  6. ECOTRIN [Concomitant]
  7. K+ [Concomitant]

REACTIONS (2)
  - ARTERIAL SPASM [None]
  - ARTERIOSPASM CORONARY [None]
